FAERS Safety Report 20035129 (Version 1)
Quarter: 2021Q4

REPORT INFORMATION
  Report Type: Spontaneous
  Country: JP (occurrence: JP)
  Receive Date: 20211104
  Receipt Date: 20211104
  Transmission Date: 20220304
  Serious: Yes (Other)
  Sender: FDA-Public Use
  Company Number: JP-BAYER-2021A240854

PATIENT
  Age: 74 Year
  Sex: Male

DRUGS (1)
  1. NUBEQA [Suspect]
     Active Substance: DAROLUTAMIDE

REACTIONS (5)
  - Renal impairment [Unknown]
  - Oedema [Unknown]
  - Hypercalcaemia [Unknown]
  - Haematuria [Unknown]
  - Constipation [Unknown]
